FAERS Safety Report 7089833-3 (Version None)
Quarter: 2010Q4

REPORT INFORMATION
  Report Type: 
  Country: None (occurrence: None)
  Receive Date: 20101108
  Receipt Date: 20101026
  Transmission Date: 20110411
  Serious: Yes (Other)
  Sender: FDA-Public Use
  Company Number: PHHY2010US70242

PATIENT
  Sex: Female
  Weight: 92.3 kg

DRUGS (19)
  1. RECLAST [Suspect]
     Indication: OSTEOPOROSIS
     Dosage: 5 MG, UNK
     Route: 042
  2. ASPIRIN [Concomitant]
     Dosage: 8 MG, QD
  3. BETIMOL [Concomitant]
     Dosage: T9H EACH EYE DAILY
  4. CARDO [Concomitant]
  5. FISH OIL [Concomitant]
     Dosage: 100 MG, BID
  6. INDAPAMIDE [Concomitant]
     Dosage: 2.5 MG, QD
  7. TOPROL-XL [Concomitant]
     Dosage: 25 MG, BID
  8. TYLENOL [Concomitant]
  9. VYTORIN [Concomitant]
     Dosage: 10/40MG DAILY
  10. XALATAN [Concomitant]
     Dosage: T9H EACH EYE DAILY
  11. ACTOS [Concomitant]
     Dosage: 15 MG, QD
  12. GLUCOVANCE [Concomitant]
     Dosage: 5/50MG BID
  13. ALLEGRA [Concomitant]
     Dosage: 180 MG, QD
  14. K-DUR [Concomitant]
     Dosage: 20 MEQ, QD
  15. SINUS RINSE [Concomitant]
     Dosage: PRN
  16. LIDODERM [Concomitant]
     Dosage: ON 12 HOURS OFF 12 HOURS
  17. VITAMINE C [Concomitant]
  18. VITAMIN D [Concomitant]
  19. CALCIUM [Concomitant]

REACTIONS (9)
  - ARTHRALGIA [None]
  - BLOOD GLUCOSE INCREASED [None]
  - BONE PAIN [None]
  - CHILLS [None]
  - HEADACHE [None]
  - MALAISE [None]
  - MYALGIA [None]
  - NAUSEA [None]
  - VOMITING [None]
